FAERS Safety Report 19997978 (Version 3)
Quarter: 2021Q4

REPORT INFORMATION
  Report Type: Spontaneous
  Country: US (occurrence: US)
  Receive Date: 20211026
  Receipt Date: 20211206
  Transmission Date: 20220303
  Serious: No
  Sender: FDA-Public Use
  Company Number: US-009507513-2001USA007021

PATIENT
  Age: 72 Year
  Sex: Female

DRUGS (2)
  1. ASMANEX [Suspect]
     Active Substance: MOMETASONE FUROATE
     Dosage: 2 PUFFS AT BEDTIME
     Route: 055
     Dates: start: 2018
  2. ASMANEX [Suspect]
     Active Substance: MOMETASONE FUROATE
     Dosage: 2 PUFFS AT BEDTIME

REACTIONS (6)
  - Product quality issue [Unknown]
  - Poor quality product administered [Unknown]
  - No adverse event [Unknown]
  - Product quality issue [Unknown]
  - Product dose omission issue [Unknown]
  - Poor quality product administered [Unknown]

NARRATIVE: CASE EVENT DATE: 20211021
